FAERS Safety Report 19083178 (Version 3)
Quarter: 2021Q4

REPORT INFORMATION
  Report Type: Spontaneous
  Country: JP (occurrence: JP)
  Receive Date: 20210401
  Receipt Date: 20211117
  Transmission Date: 20220303
  Serious: Yes (Other)
  Sender: FDA-Public Use
  Company Number: JP-PFIZER INC-2021323340

PATIENT
  Sex: Male

DRUGS (2)
  1. XALATAN [Suspect]
     Active Substance: LATANOPROST
     Indication: Intraocular pressure increased
     Dosage: RIGHT EYE
     Route: 047
  2. XALATAN [Suspect]
     Active Substance: LATANOPROST
     Indication: Glaucoma

REACTIONS (5)
  - Cataract [Unknown]
  - Epiretinal membrane [Unknown]
  - Cystoid macular oedema [Unknown]
  - Visual acuity reduced [Unknown]
  - Metamorphopsia [Recovered/Resolved]
